FAERS Safety Report 13372726 (Version 1)
Quarter: 2017Q1

REPORT INFORMATION
  Report Type: Spontaneous
  Country: US (occurrence: US)
  Receive Date: 20170326
  Receipt Date: 20170326
  Transmission Date: 20170429
  Serious: Yes (Disabling)
  Sender: FDA-Public Use
  Company Number: None

PATIENT
  Age: 44 Year
  Sex: Male
  Weight: 54 kg

DRUGS (3)
  1. HYDROXYZINE HCL 10MG TAB VA HOSPITAL STRATTON [Suspect]
     Active Substance: HYDROXYZINE HYDROCHLORIDE
     Indication: ALCOHOL USE
     Route: 048
     Dates: start: 20170322, end: 20170324
  2. POTASSIUM CHLORIDE ER [Concomitant]
     Active Substance: POTASSIUM CHLORIDE
  3. ERGOCALCIFEROL. [Concomitant]
     Active Substance: ERGOCALCIFEROL

REACTIONS (1)
  - Sinusitis [None]

NARRATIVE: CASE EVENT DATE: 20170324
